FAERS Safety Report 14490795 (Version 1)
Quarter: 2018Q1

REPORT INFORMATION
  Report Type: Spontaneous
  Country: GB (occurrence: GB)
  Receive Date: 20180206
  Receipt Date: 20180206
  Transmission Date: 20180509
  Serious: Yes (Other)
  Sender: FDA-Public Use
  Company Number: GB-AUROBINDO-AUR-APL-2018-004575

PATIENT
  Age: 52 Year
  Sex: Male

DRUGS (3)
  1. ASPIRIN                            /00002701/ [Suspect]
     Active Substance: ASPIRIN
     Indication: OSTEOARTHRITIS
     Dosage: DOSAGE FORM: UNSPECIFIED ()
     Route: 065
  2. DICLOFENAC [Suspect]
     Active Substance: DICLOFENAC
     Indication: OSTEOARTHRITIS
     Dosage: DOSAGE FORM: UNSPECIFIED ()
     Route: 065
  3. IBUPROFEN. [Suspect]
     Active Substance: IBUPROFEN
     Indication: OSTEOARTHRITIS
     Dosage: DOSAGE FORM: UNSPECIFIED ()
     Route: 065

REACTIONS (4)
  - Small intestinal obstruction [Recovered/Resolved]
  - Off label use [Unknown]
  - Intestinal diaphragm disease [Recovered/Resolved]
  - Product use in unapproved indication [Unknown]
